FAERS Safety Report 4703866-0 (Version None)
Quarter: 2005Q2

REPORT INFORMATION
  Report Type: 
  Country: None (occurrence: None)
  Receive Date: 20050630
  Receipt Date: 20050526
  Transmission Date: 20051028
  Serious: No
  Sender: FDA-Public Use
  Company Number: US-GLAXOSMITHKLINE-A0560307A

PATIENT
  Age: 2 Year
  Sex: Male

DRUGS (2)
  1. FLOVENT [Suspect]
     Indication: ASTHMA
     Dosage: 2PUFF TWICE PER DAY
     Route: 055
  2. FLOVENT [Suspect]
     Dosage: 88MCG TWICE PER DAY
     Route: 055

REACTIONS (2)
  - COUGH [None]
  - PRODUCTIVE COUGH [None]
